FAERS Safety Report 25098011 (Version 1)
Quarter: 2025Q1

REPORT INFORMATION
  Report Type: Spontaneous
  Country: US (occurrence: US)
  Receive Date: 20250320
  Receipt Date: 20250320
  Transmission Date: 20250409
  Serious: Yes (Other)
  Sender: NOVO NORDISK
  Company Number: US-NOVOPROD-1389795

PATIENT
  Sex: Female
  Weight: 105.67 kg

DRUGS (1)
  1. OZEMPIC [Suspect]
     Active Substance: SEMAGLUTIDE
     Indication: Product used for unknown indication

REACTIONS (4)
  - Cardiac operation [Unknown]
  - Chronic kidney disease [Unknown]
  - Thyroid disorder [Unknown]
  - Product use in unapproved indication [Unknown]
